FAERS Safety Report 10454077 (Version 1)
Quarter: 2014Q3

REPORT INFORMATION
  Report Type: Spontaneous
  Country: US (occurrence: US)
  Receive Date: 20140915
  Receipt Date: 20140915
  Transmission Date: 20150326
  Serious: No
  Sender: FDA-Public Use
  Company Number: US-BRISTOL-MYERS SQUIBB COMPANY-20986808

PATIENT
  Age: 81 Year
  Sex: Male
  Weight: 68.03 kg

DRUGS (9)
  1. MULTIVITAMIN [Concomitant]
     Active Substance: VITAMINS
  2. FLOVENT [Concomitant]
     Active Substance: FLUTICASONE PROPIONATE
     Indication: CHRONIC OBSTRUCTIVE PULMONARY DISEASE
  3. NIACIN. [Concomitant]
     Active Substance: NIACIN
  4. PROAIR HFA [Concomitant]
     Active Substance: ALBUTEROL SULFATE
  5. VITAMIN [Concomitant]
     Active Substance: VITAMINS
  6. ASPIRIN. [Suspect]
     Active Substance: ASPIRIN
  7. ELIQUIS [Suspect]
     Active Substance: APIXABAN
     Indication: CEREBROVASCULAR ACCIDENT PROPHYLAXIS
  8. IRON [Concomitant]
     Active Substance: IRON
     Indication: ANAEMIA
  9. METOPROLOL [Concomitant]
     Active Substance: METOPROLOL
     Indication: BLOOD PRESSURE

REACTIONS (5)
  - Blood creatinine increased [Unknown]
  - Functional gastrointestinal disorder [Unknown]
  - Pruritus [Unknown]
  - Contusion [Unknown]
  - Blood pressure decreased [Unknown]
